FAERS Safety Report 5767962-1 (Version None)
Quarter: 2008Q2

REPORT INFORMATION
  Report Type: 
  Country: None (occurrence: None)
  Receive Date: 20080612
  Receipt Date: 20080605
  Transmission Date: 20081010
  Serious: Yes (Hospitalization)
  Sender: FDA-Public Use
  Company Number: JP-PFIZER INC-2008048287

PATIENT
  Sex: Male

DRUGS (3)
  1. VIRACEPT [Suspect]
     Indication: HIV INFECTION
     Route: 048
     Dates: start: 19980806, end: 20071019
  2. EPIVIR [Suspect]
     Indication: HIV INFECTION
     Route: 048
     Dates: start: 19980327, end: 20071019
  3. ZIAGEN [Suspect]
     Indication: HIV INFECTION
     Route: 048
     Dates: start: 20040907, end: 20071019

REACTIONS (1)
  - APPENDICITIS [None]
